FAERS Safety Report 18460951 (Version 1)
Quarter: 2020Q4

REPORT INFORMATION
  Report Type: Other
  Country: FR (occurrence: FR)
  Receive Date: 20201104
  Receipt Date: 20201104
  Transmission Date: 20210114
  Serious: Yes (Hospitalization, Other)
  Sender: FDA-Public Use
  Company Number: FR-APOTEX-2020AP020896

PATIENT
  Age: 71 Year
  Sex: Male

DRUGS (2)
  1. MANTADIX [Suspect]
     Active Substance: AMANTADINE HYDROCHLORIDE
     Indication: PARKINSONISM
     Dosage: 200 MG, QD
     Route: 048
     Dates: end: 20200817
  2. PAROXETINE. [Suspect]
     Active Substance: PAROXETINE
     Indication: SUICIDAL IDEATION
     Dosage: 20 MG, QD
     Route: 048
     Dates: start: 202007, end: 20200813

REACTIONS (3)
  - Fall [Recovering/Resolving]
  - Tremor [Recovering/Resolving]
  - Hallucinations, mixed [Recovered/Resolved]

NARRATIVE: CASE EVENT DATE: 202007
